FAERS Safety Report 22209354 (Version 2)
Quarter: 2023Q2

REPORT INFORMATION
  Report Type: Report from Study
  Country: JP (occurrence: JP)
  Receive Date: 20230413
  Receipt Date: 20230419
  Transmission Date: 20230721
  Serious: Yes (Other)
  Sender: FDA-Public Use
  Company Number: JP-CELLTRION INC.-2020JP024596

PATIENT

DRUGS (9)
  1. INFLIXIMAB-DYYB [Suspect]
     Active Substance: INFLIXIMAB-DYYB
     Indication: Colitis ulcerative
     Dosage: 255 MG (WEIGHT: 51 KG)
     Route: 041
     Dates: start: 20181010, end: 20181010
  2. INFLIXIMAB-DYYB [Suspect]
     Active Substance: INFLIXIMAB-DYYB
     Dosage: 270 MG (WEIGHT: 53.5 KG)
     Route: 041
     Dates: start: 20181205, end: 20181205
  3. INFLIXIMAB-DYYB [Suspect]
     Active Substance: INFLIXIMAB-DYYB
     Dosage: 265 MG (WEIGHT: 52.5 KG)
     Route: 041
     Dates: start: 20190130, end: 20190130
  4. INFLIXIMAB-DYYB [Suspect]
     Active Substance: INFLIXIMAB-DYYB
     Dosage: 270 MG (WEIGHT: 53.5 KG)
     Route: 041
     Dates: start: 20190326, end: 20190326
  5. INFLIXIMAB-DYYB [Suspect]
     Active Substance: INFLIXIMAB-DYYB
     Dosage: 260 MG (WEIGHT: 52.1 KG)
     Route: 041
     Dates: start: 20191106, end: 20191106
  6. INFLIXIMAB-DYYB [Suspect]
     Active Substance: INFLIXIMAB-DYYB
     Dosage: 275 MG (WEIGHT: 55.5 KG)
     Route: 041
     Dates: start: 20201021, end: 20201021
  7. INFLIXIMAB-DYYB [Suspect]
     Active Substance: INFLIXIMAB-DYYB
     Dosage: 270 MG (WEIGHT: 54 KG)
     Route: 041
     Dates: start: 20211124, end: 20211124
  8. INFLIXIMAB-DYYB [Suspect]
     Active Substance: INFLIXIMAB-DYYB
     Dosage: 240 MG (WEIGHT: 48.3 KG)
     Route: 041
     Dates: start: 20221019, end: 20221019
  9. MESALAMINE [Concomitant]
     Active Substance: MESALAMINE
     Dosage: 2400 MG, QD
     Route: 048
     Dates: start: 20170830

REACTIONS (10)
  - COVID-19 [Recovered/Resolved]
  - Interstitial lung disease [Not Recovered/Not Resolved]
  - Zinc deficiency [Not Recovered/Not Resolved]
  - Upper respiratory tract inflammation [Recovered/Resolved]
  - Tinnitus [Not Recovered/Not Resolved]
  - Large intestine polyp [Recovered/Resolved]
  - Dyslipidaemia [Not Recovered/Not Resolved]
  - Cough [Recovered/Resolved]
  - Overdose [Unknown]
  - Underdose [Unknown]

NARRATIVE: CASE EVENT DATE: 20190227
